FAERS Safety Report 9475291 (Version 2)
Quarter: 2015Q2

REPORT INFORMATION
  Report Type: Spontaneous
  Country: BR (occurrence: BR)
  Receive Date: 20130826
  Receipt Date: 20150422
  Transmission Date: 20150821
  Serious: Yes (Other)
  Sender: FDA-Public Use
  Company Number: BR-AMGEN-BRASP2013059460

PATIENT
  Age: 60 Year
  Sex: Male
  Weight: 75 kg

DRUGS (3)
  1. DEFLAZACORT [Concomitant]
     Active Substance: DEFLAZACORT
     Indication: ANKYLOSING SPONDYLITIS
     Dosage: UNK
     Dates: start: 201208
  2. ZART H [Concomitant]
     Indication: HYPERTENSION
     Dosage: UNK
     Dates: start: 2010
  3. ENBREL [Suspect]
     Active Substance: ETANERCEPT
     Indication: ANKYLOSING SPONDYLITIS
     Dosage: 50 MG, ONCE WEEKLY
     Route: 058
     Dates: start: 2012

REACTIONS (1)
  - Coronary artery occlusion [Unknown]

NARRATIVE: CASE EVENT DATE: 201303
